FAERS Safety Report 6602715-3 (Version None)
Quarter: 2010Q1

REPORT INFORMATION
  Report Type: 
  Country: None (occurrence: None)
  Receive Date: 20100218
  Receipt Date: 20100203
  Transmission Date: 20100710
  Serious: Yes (Hospitalization, Other)
  Sender: FDA-Public Use
  Company Number: 006184

PATIENT
  Sex: Male
  Weight: 90 kg

DRUGS (1)
  1. KEPPRA [Suspect]
     Indication: EPILEPSY
     Dosage: (1 UNIT TWICE DAILY ORAL)
     Route: 048
     Dates: start: 20091201

REACTIONS (3)
  - ASTHENOSPERMIA [None]
  - AZOOSPERMIA [None]
  - INFERTILITY MALE [None]
